FAERS Safety Report 16262869 (Version 1)
Quarter: 2019Q2

REPORT INFORMATION
  Report Type: Spontaneous
  Country: ES (occurrence: ES)
  Receive Date: 20190502
  Receipt Date: 20190502
  Transmission Date: 20190711
  Serious: Yes (Death, Other)
  Sender: FDA-Public Use
  Company Number: ES-TEVA-2019-ES-1043554

PATIENT
  Age: 64 Year
  Sex: Male

DRUGS (8)
  1. IRINOTECAN [Suspect]
     Active Substance: IRINOTECAN
     Indication: ADENOCARCINOMA OF COLON
     Dosage: PART OF FOLFIRI-CETUXIMAB REGIMEN
     Route: 065
  2. CAPECITABINE. [Interacting]
     Active Substance: CAPECITABINE
     Indication: ADENOCARCINOMA OF COLON
     Dosage: PART OF AVEX REGIMEN
     Route: 065
  3. FOLINIC ACID [Suspect]
     Active Substance: LEUCOVORIN
     Indication: ADENOCARCINOMA OF COLON
     Dosage: PART OF FOLFOX6 REGIMEN
     Route: 065
  4. OXALIPLATIN. [Suspect]
     Active Substance: OXALIPLATIN
     Indication: ADENOCARCINOMA OF COLON
     Dosage: PART OF FOLFOX6 REGIMEN
     Route: 065
  5. SIR-SPHERES [Interacting]
     Active Substance: DEVICE\YTTRIUM Y-90
     Indication: ADENOCARCINOMA OF COLON
     Route: 065
  6. FLUOROURACIL. [Suspect]
     Active Substance: FLUOROURACIL
     Indication: ADENOCARCINOMA OF COLON
     Dosage: PART OF FOLFOX6 REGIMEN
     Route: 065
  7. AVASTIN [Suspect]
     Active Substance: BEVACIZUMAB
     Indication: ADENOCARCINOMA OF COLON
     Dosage: PART OF AVEX REGIMEN
     Route: 065
  8. CETUXIMAB. [Suspect]
     Active Substance: CETUXIMAB
     Indication: ADENOCARCINOMA OF COLON
     Dosage: PART OF FOLFIRI-CETUXIMAB REGIMEN
     Route: 065

REACTIONS (7)
  - Hepatic encephalopathy [Fatal]
  - Ascites [Unknown]
  - Splenomegaly [Unknown]
  - Non-cirrhotic portal hypertension [Unknown]
  - Drug interaction [Unknown]
  - Nodular regenerative hyperplasia [Unknown]
  - Hyperbilirubinaemia [Recovered/Resolved]
